FAERS Safety Report 21989203 (Version 5)
Quarter: 2023Q2

REPORT INFORMATION
  Report Type: Report from Study
  Country: US (occurrence: US)
  Receive Date: 20230214
  Receipt Date: 20230511
  Transmission Date: 20230721
  Serious: No
  Sender: FDA-Public Use
  Company Number: US-002147023-NVSC2023US028377

PATIENT
  Sex: Female

DRUGS (3)
  1. COSENTYX [Suspect]
     Active Substance: SECUKINUMAB
     Indication: Psoriasis
     Dosage: 75 MG, QW (ONCE WEEKLY FOR 5 WEEKS, THEN ONCE EVERY 4 WEEKS) (FIRST LOADING DOSE)
     Route: 058
     Dates: start: 20221212
  2. COSENTYX [Suspect]
     Active Substance: SECUKINUMAB
     Dosage: UNK (SECOND LOADING DOSE)
     Route: 065
     Dates: start: 20221219
  3. COSENTYX [Suspect]
     Active Substance: SECUKINUMAB
     Dosage: UNK (THIRD LOADING DOSE)
     Route: 065
     Dates: start: 20221229

REACTIONS (5)
  - Psoriasis [Unknown]
  - Dry skin [Not Recovered/Not Resolved]
  - Conjunctivitis [Unknown]
  - Inappropriate schedule of product administration [Unknown]
  - Therapeutic product effect incomplete [Unknown]
